FAERS Safety Report 18471807 (Version 1)
Quarter: 2020Q4

REPORT INFORMATION
  Report Type: Report from Study
  Country: US (occurrence: US)
  Receive Date: 20201106
  Receipt Date: 20201106
  Transmission Date: 20210114
  Serious: No
  Sender: FDA-Public Use
  Company Number: US-BIOVITRUM-2020US5901

PATIENT
  Sex: Female

DRUGS (3)
  1. ESTRADIOL. [Concomitant]
     Active Substance: ESTRADIOL
  2. KINERET [Suspect]
     Active Substance: ANAKINRA
     Indication: PRODUCT USED FOR UNKNOWN INDICATION
     Route: 058
     Dates: start: 2016
  3. DIAZEPAM. [Concomitant]
     Active Substance: DIAZEPAM

REACTIONS (3)
  - Mass [Unknown]
  - Injection site mass [Unknown]
  - Injection site erythema [Unknown]
